FAERS Safety Report 17983083 (Version 5)
Quarter: 2021Q1

REPORT INFORMATION
  Report Type: Spontaneous
  Country: US (occurrence: US)
  Receive Date: 20200706
  Receipt Date: 20210330
  Transmission Date: 20210419
  Serious: No
  Sender: FDA-Public Use
  Company Number: US-PFIZER INC-2020256936

PATIENT
  Age: 79 Year
  Sex: Female

DRUGS (1)
  1. IBRANCE [Suspect]
     Active Substance: PALBOCICLIB
     Dosage: 125 MG

REACTIONS (7)
  - Neoplasm progression [Unknown]
  - Increased appetite [Unknown]
  - Alopecia [Unknown]
  - Mobility decreased [Unknown]
  - Fatigue [Unknown]
  - Depression [Unknown]
  - Hunger [Unknown]
